FAERS Safety Report 5982221-X (Version None)
Quarter: 2008Q4

REPORT INFORMATION
  Report Type: 
  Country: None (occurrence: None)
  Receive Date: 20081208
  Receipt Date: 20081126
  Transmission Date: 20090506
  Serious: Yes (Other)
  Sender: FDA-Public Use
  Company Number: FR-JNJFOC-20081001251

PATIENT
  Age: 36 Year
  Sex: Female
  Weight: 67 kg

DRUGS (3)
  1. REMICADE [Suspect]
     Route: 042
  2. REMICADE [Suspect]
     Indication: ANKYLOSING SPONDYLITIS
     Route: 042
  3. DIANTALVIC [Concomitant]
     Indication: ANKYLOSING SPONDYLITIS

REACTIONS (2)
  - HAEMORRHAGIC DISORDER [None]
  - THROMBOCYTOPENIA [None]
